FAERS Safety Report 15353678 (Version 2)
Quarter: 2018Q4

REPORT INFORMATION
  Report Type: Spontaneous
  Country: US (occurrence: US)
  Receive Date: 20180905
  Receipt Date: 20181009
  Transmission Date: 20190204
  Serious: Yes (Other)
  Sender: FDA-Public Use
  Company Number: US-GEHC-2018CSU003412

PATIENT
  Age: 78 Year
  Sex: Male
  Weight: 64.4 kg

DRUGS (1)
  1. OMNIPAQUE [Suspect]
     Active Substance: IOHEXOL
     Indication: ABDOMINAL PAIN LOWER
     Dosage: 100 ML, SINGLE
     Route: 042
     Dates: start: 20180823, end: 20180823

REACTIONS (2)
  - Throat tightness [Recovered/Resolved]
  - Speech disorder [Recovered/Resolved]

NARRATIVE: CASE EVENT DATE: 20180823
